FAERS Safety Report 4268550-9 (Version None)
Quarter: 2004Q1

REPORT INFORMATION
  Report Type: 
  Country: None (occurrence: None)
  Receive Date: 20040108
  Receipt Date: 20031229
  Transmission Date: 20041129
  Serious: Yes (Hospitalization)
  Sender: FDA-Public Use
  Company Number: US-JNJFOC-20031205596

PATIENT
  Age: 74 Year
  Sex: Female

DRUGS (11)
  1. INFLIXIMAB (INFLIXIMAB, RECOMBINANT) LYOPHILIZED POWDER [Suspect]
     Indication: RHEUMATOID ARTHRITIS
     Dosage: INTRAVENOUS
     Route: 042
     Dates: start: 20000831
  2. FOLIC ACID [Concomitant]
  3. METHOTREXATE [Concomitant]
  4. ZOMETA [Concomitant]
  5. ZOCOR [Concomitant]
  6. DIOVAN [Concomitant]
  7. ACIPHEX (RABEPRAZOLE SODIUM)` [Concomitant]
  8. VIOXX [Concomitant]
  9. CLARITIN [Concomitant]
  10. ASPIRIN [Concomitant]
  11. PRANDIN (DEFLAZACORT) [Concomitant]

REACTIONS (2)
  - CHEST DISCOMFORT [None]
  - GASTROOESOPHAGEAL REFLUX DISEASE [None]
